FAERS Safety Report 21768223 (Version 1)
Quarter: 2022Q4

REPORT INFORMATION
  Report Type: Spontaneous
  Country: US (occurrence: None)
  Receive Date: 20221222
  Receipt Date: 20221222
  Transmission Date: 20230113
  Serious: Yes (Other)
  Sender: FDA-Public Use
  Company Number: None

PATIENT
  Age: 10 Year
  Sex: Male
  Weight: 58.1 kg

DRUGS (3)
  1. PROPOFOL [Suspect]
     Active Substance: PROPOFOL
     Indication: Sedative therapy
     Dosage: FREQUENCY : AS NEEDED;?
     Route: 040
     Dates: start: 20221220, end: 20221220
  2. FENTANYL [Concomitant]
     Active Substance: FENTANYL
     Dates: start: 20221220, end: 20221220
  3. MIDAZOLAM [Concomitant]
     Active Substance: MIDAZOLAM
     Dates: start: 20221220, end: 20221220

REACTIONS (2)
  - Drug ineffective [None]
  - Aggression [None]

NARRATIVE: CASE EVENT DATE: 20221220
